FAERS Safety Report 8346724-5 (Version None)
Quarter: 2012Q2

REPORT INFORMATION
  Report Type: 
  Country: None (occurrence: None)
  Receive Date: 20120508
  Receipt Date: 20120508
  Transmission Date: 20120825
  Serious: No
  Sender: FDA-Public Use
  Company Number: None

PATIENT
  Age: 47 Year
  Sex: Female
  Weight: 83.6 kg

DRUGS (8)
  1. NEURONTIN [Concomitant]
  2. RANITIDINE (ZANTAC) [Concomitant]
  3. PREDNISONE (DELTASONE) [Concomitant]
  4. SOLU-MEDROL, PF [Concomitant]
  5. GABAPENTIN [Concomitant]
  6. CODEINE-GUAIFENESIN (CHERATUSSIN AC) [Concomitant]
  7. OXYBUTYNIN (DITROPAN XL) [Concomitant]
  8. AMPYRA [Suspect]
     Indication: MULTIPLE SCLEROSIS
     Dosage: 10 MG EVERY 12 HOURS ORAL
     Route: 048
     Dates: start: 20120329, end: 20120414

REACTIONS (6)
  - ARTHRALGIA [None]
  - GAIT DISTURBANCE [None]
  - PAIN IN EXTREMITY [None]
  - PARAPARESIS [None]
  - DISEASE RECURRENCE [None]
  - ACTIVITIES OF DAILY LIVING IMPAIRED [None]
